FAERS Safety Report 9338370 (Version 1)
Quarter: 2013Q2

REPORT INFORMATION
  Report Type: Spontaneous
  Country: US (occurrence: US)
  Receive Date: 20130610
  Receipt Date: 20130610
  Transmission Date: 20140414
  Serious: No
  Sender: FDA-Public Use
  Company Number: US-PFIZER INC-2013172926

PATIENT
  Age: 67 Year
  Sex: Female
  Weight: 73.47 kg

DRUGS (3)
  1. NICOTROL INHALER [Suspect]
     Indication: LUNG DISORDER
     Dosage: 2 TO 6 CARTRIDGES OF 10 MG DAILY
     Dates: start: 20130605
  2. NICOTROL INHALER [Suspect]
     Indication: CARDIAC DISORDER
  3. TOPROL XL [Concomitant]
     Indication: HYPERTENSION
     Dosage: 25 MG DAILY

REACTIONS (4)
  - Product quality issue [Unknown]
  - Drug ineffective [Unknown]
  - Feeling abnormal [Unknown]
  - Off label use [Unknown]
